FAERS Safety Report 7492636-9 (Version None)
Quarter: 2011Q2

REPORT INFORMATION
  Report Type: 
  Country: None (occurrence: None)
  Receive Date: 20110519
  Receipt Date: 20110512
  Transmission Date: 20111010
  Serious: Yes (Hospitalization)
  Sender: FDA-Public Use
  Company Number: US-US-EMD SERONO, INC.-7053721

PATIENT
  Sex: Female
  Weight: 63 kg

DRUGS (3)
  1. ADVIL LIQUI-GELS [Concomitant]
     Indication: PREMEDICATION
  2. REBIF [Suspect]
     Indication: PRODUCT USED FOR UNKNOWN INDICATION
     Route: 058
     Dates: start: 20101213
  3. ASPIRIN [Concomitant]
     Indication: PREMEDICATION

REACTIONS (5)
  - DIARRHOEA [None]
  - RED BLOOD CELL COUNT DECREASED [None]
  - NERVE COMPRESSION [None]
  - INJECTION SITE ERYTHEMA [None]
  - INFLUENZA LIKE ILLNESS [None]
